FAERS Safety Report 24592678 (Version 4)
Quarter: 2025Q4

REPORT INFORMATION
  Report Type: Spontaneous
  Country: US (occurrence: US)
  Receive Date: 20241108
  Receipt Date: 20251224
  Transmission Date: 20260117
  Serious: No
  Sender: AMGEN
  Company Number: US-AMGEN-USASP2024213883

PATIENT
  Age: 49 Year
  Sex: Female

DRUGS (2)
  1. OTEZLA [Suspect]
     Active Substance: APREMILAST
     Indication: Psoriatic arthropathy
     Dosage: 30 MILLIGRAM, BID
     Route: 048
     Dates: start: 20241029
  2. COSENTYX [Concomitant]
     Active Substance: SECUKINUMAB
     Dosage: UNK, 150 MG/ML PEN (2=1 BX)

REACTIONS (13)
  - Pain [Unknown]
  - Nasopharyngitis [Not Recovered/Not Resolved]
  - Wound [Not Recovered/Not Resolved]
  - Loss of personal independence in daily activities [Unknown]
  - Fungal infection [Not Recovered/Not Resolved]
  - Product dose omission issue [Unknown]
  - Discomfort [Not Recovered/Not Resolved]
  - Rash [Not Recovered/Not Resolved]
  - Iliac vein stenosis [Not Recovered/Not Resolved]
  - Infection [Unknown]
  - Adverse drug reaction [Unknown]
  - Therapy non-responder [Unknown]
  - Illness [Unknown]

NARRATIVE: CASE EVENT DATE: 20250101
